FAERS Safety Report 13844271 (Version 2)
Quarter: 2017Q3

REPORT INFORMATION
  Report Type: Spontaneous
  Country: JP (occurrence: JP)
  Receive Date: 20170808
  Receipt Date: 20170915
  Transmission Date: 20171127
  Serious: Yes (Other)
  Sender: FDA-Public Use
  Company Number: JP-PFIZER INC-2017338837

PATIENT
  Age: 101 Year
  Sex: Female

DRUGS (2)
  1. LYRICA [Suspect]
     Active Substance: PREGABALIN
     Dosage: 125 MG, DAILY (25 MG IN THE MORNING AND 100 MG BEFORE SLEEP)
     Dates: end: 20170526
  2. LYRICA [Suspect]
     Active Substance: PREGABALIN
     Dosage: 100 MG, DAILY (25 MG IN THE MORNING AND 75 MG BEFORE SLEEP)
     Dates: start: 20170527

REACTIONS (1)
  - Hepatitis [Unknown]
